FAERS Safety Report 5109328-3 (Version None)
Quarter: 2006Q3

REPORT INFORMATION
  Report Type: 
  Country: None (occurrence: None)
  Receive Date: 20060918
  Receipt Date: 20060901
  Transmission Date: 20061208
  Serious: Yes (Hospitalization)
  Sender: FDA-Public Use
  Company Number: 06-000958

PATIENT
  Age: 61 Year
  Sex: Female

DRUGS (3)
  1. FEMHRT [Suspect]
     Indication: OESTROGEN THERAPY
     Dosage: 5/1000 UG, QD, ORAL
     Route: 048
     Dates: start: 20020101, end: 20060902
  2. FOSAMAX [Concomitant]
  3. ADVIL COLD AND SINUS [Concomitant]

REACTIONS (8)
  - ABDOMINAL PAIN [None]
  - DYSPNOEA [None]
  - FATIGUE [None]
  - GENITAL TRACT INFLAMMATION [None]
  - OEDEMA PERIPHERAL [None]
  - PAIN IN EXTREMITY [None]
  - PURULENT DISCHARGE [None]
  - VOMITING [None]
